FAERS Safety Report 14373375 (Version 1)
Quarter: 2018Q1

REPORT INFORMATION
  Report Type: Spontaneous
  Country: US (occurrence: US)
  Receive Date: 20180109
  Receipt Date: 20180109
  Transmission Date: 20180509
  Serious: Yes (Other)
  Sender: FDA-Public Use
  Company Number: None

PATIENT
  Age: 47 Year
  Sex: Female
  Weight: 104.5 kg

DRUGS (1)
  1. ENBREL [Suspect]
     Active Substance: ETANERCEPT
     Indication: CUTANEOUS LUPUS ERYTHEMATOSUS
     Dosage: 50MG INJECT 1ML EVERY WEEK
     Route: 058
     Dates: start: 20170718, end: 20170814

REACTIONS (4)
  - Injection site erythema [None]
  - Injection site pruritus [None]
  - Injection site urticaria [None]
  - Pneumonia [None]

NARRATIVE: CASE EVENT DATE: 20171028
